FAERS Safety Report 7859991-9 (Version None)
Quarter: 2011Q4

REPORT INFORMATION
  Report Type: 
  Country: None (occurrence: None)
  Receive Date: 20111026
  Receipt Date: 20111026
  Transmission Date: 20120403
  Serious: No
  Sender: FDA-Public Use
  Company Number: None

PATIENT
  Sex: Female
  Weight: 77.5651 kg

DRUGS (2)
  1. ADCIRCA [Suspect]
     Indication: PULMONARY ARTERIAL HYPERTENSION
     Dosage: 40MG DAILY ORALLY
     Route: 048
     Dates: start: 20111003, end: 20111020
  2. TRACLEER [Concomitant]

REACTIONS (4)
  - ABDOMINAL PAIN [None]
  - MYALGIA [None]
  - DYSPNOEA [None]
  - DIARRHOEA [None]
